FAERS Safety Report 26132513 (Version 1)
Quarter: 2025Q4

REPORT INFORMATION
  Report Type: Spontaneous
  Country: US (occurrence: US)
  Receive Date: 20251208
  Receipt Date: 20251208
  Transmission Date: 20260117
  Serious: Yes (Other)
  Sender: PFIZER
  Company Number: US-PFIZER INC-202500235639

PATIENT
  Age: 52 Year
  Sex: Male

DRUGS (2)
  1. DOBUTAMINE HYDROCHLORIDE [Suspect]
     Active Substance: DOBUTAMINE HYDROCHLORIDE
     Indication: Stress echocardiogram
     Dosage: UNK
     Dates: start: 20241031, end: 20241031
  2. DEFINITY [Concomitant]
     Active Substance: PERFLUTREN
     Indication: Stress echocardiogram
     Dosage: IV DILUTED BOLUS IN 3X2ML INCREMENTS
     Route: 040
     Dates: start: 20241031, end: 20241031

REACTIONS (6)
  - Unresponsive to stimuli [Recovered/Resolved]
  - Hyperventilation [Recovered/Resolved]
  - Anxiety [Recovered/Resolved]
  - Dyspnoea [Recovered/Resolved]
  - Fatigue [Recovered/Resolved]
  - Hypertension [Recovered/Resolved]

NARRATIVE: CASE EVENT DATE: 20241031
